FAERS Safety Report 8831477 (Version 1)
Quarter: 2012Q4

REPORT INFORMATION
  Report Type: 
  Country: FR (occurrence: FR)
  Receive Date: 20121009
  Receipt Date: 20121009
  Transmission Date: 20130627
  Serious: Yes (Death, Life-Threatening, Hospitalization, Other)
  Sender: FDA-Public Use
  Company Number: FR-009507513-1109FRA00097

PATIENT
  Age: 57 Year
  Sex: Male
  Weight: 54 kg

DRUGS (5)
  1. ISENTRESS [Suspect]
     Indication: HIV INFECTION
     Route: 048
     Dates: end: 20100222
  2. PREZISTA [Suspect]
     Indication: HIV INFECTION
     Route: 048
     Dates: start: 20100209, end: 20100222
  3. NORVIR [Suspect]
     Indication: HIV INFECTION
     Route: 048
     Dates: end: 20100222
  4. INEXIUM [Suspect]
     Indication: GASTRODUODENAL ULCER
     Dosage: 1 DF, qd
     Route: 048
     Dates: start: 20100127
  5. REYATAZ [Concomitant]
     Indication: HIV INFECTION
     Route: 048
     Dates: end: 20100209

REACTIONS (3)
  - Hepatic failure [Fatal]
  - Jaundice [Not Recovered/Not Resolved]
  - Hepatitis cholestatic [Not Recovered/Not Resolved]
